FAERS Safety Report 20429953 (Version 1)
Quarter: 2022Q1

REPORT INFORMATION
  Report Type: Report from Study
  Country: FR (occurrence: FR)
  Receive Date: 20220204
  Receipt Date: 20220204
  Transmission Date: 20220423
  Serious: Yes (Hospitalization, Other)
  Sender: FDA-Public Use
  Company Number: FR-SERVIER-S19004145

PATIENT

DRUGS (8)
  1. PEGASPARGASE [Suspect]
     Active Substance: PEGASPARGASE
     Indication: Acute lymphocytic leukaemia
     Dosage: 787.5 IU, ON D4
     Route: 042
     Dates: start: 20181129, end: 20181129
  2. METHOTREXATE [Suspect]
     Active Substance: METHOTREXATE
     Indication: Acute lymphocytic leukaemia
     Dosage: 12 MG, ON D4 AND  D31
     Route: 037
     Dates: start: 20181129, end: 20181226
  3. DOXORUBICIN HYDROCHLORIDE [Suspect]
     Active Substance: DOXORUBICIN HYDROCHLORIDE
     Indication: Acute lymphocytic leukaemia
     Dosage: 15.6 MG (D1, D8, D15)
     Route: 042
     Dates: start: 20181126, end: 20181210
  4. VINCRISTINE [Suspect]
     Active Substance: VINCRISTINE
     Indication: Acute lymphocytic leukaemia
     Dosage: 0.94 MG, ON D1, D8, D15
     Route: 042
     Dates: start: 20181126, end: 20181210
  5. CYCLOPHOSPHAMIDE [Suspect]
     Active Substance: CYCLOPHOSPHAMIDE
     Indication: Acute lymphocytic leukaemia
     Dosage: 620 MG, ON D29
     Route: 042
     Dates: start: 20181124, end: 20181224
  6. CYTARABINE [Suspect]
     Active Substance: CYTARABINE
     Indication: Acute lymphocytic leukaemia
     Dosage: 47 MG, QD FROM D31 TO D34 AND FROM D38 TO D41
     Route: 042
     Dates: start: 20180710, end: 20190105
  7. DEXAMETHASONE SODIUM SUCCINATE [Suspect]
     Active Substance: DEXAMETHASONE SODIUM SUCCINATE
     Indication: Acute lymphocytic leukaemia
     Dosage: 6 MG, FROM D1 TO D15
     Route: 048
     Dates: start: 20181126, end: 20181210
  8. THIOGUANINE [Suspect]
     Active Substance: THIOGUANINE
     Indication: Acute lymphocytic leukaemia
     Dosage: 37 MG, FROM D29 TO D42
     Route: 048
     Dates: start: 20181124, end: 20190106

REACTIONS (2)
  - Pyelitis [Recovered/Resolved]
  - Hypofibrinogenaemia [Recovered/Resolved]

NARRATIVE: CASE EVENT DATE: 20181210
